FAERS Safety Report 22989959 (Version 2)
Quarter: 2023Q4

REPORT INFORMATION
  Report Type: Report from Study
  Country: GB (occurrence: GB)
  Receive Date: 20230927
  Receipt Date: 20231020
  Transmission Date: 20240110
  Serious: Yes (Hospitalization)
  Sender: FDA-Public Use
  Company Number: GB-INSMED, INC.-2023-03525-GB

PATIENT
  Sex: Female

DRUGS (1)
  1. ARIKAYCE [Suspect]
     Active Substance: AMIKACIN
     Indication: Cystic fibrosis
     Dosage: 590 MILLIGRAM, QD
     Route: 055
     Dates: start: 20230719

REACTIONS (5)
  - Hospitalisation [Unknown]
  - Infection [Unknown]
  - Bacterial infection [Unknown]
  - Off label use [Unknown]
  - Therapy interrupted [Unknown]

NARRATIVE: CASE EVENT DATE: 20230101
